FAERS Safety Report 5217991-1 (Version None)
Quarter: 2007Q1

REPORT INFORMATION
  Report Type: 
  Country: None (occurrence: None)
  Receive Date: 20070124
  Receipt Date: 20060523
  Transmission Date: 20070707
  Serious: No
  Sender: FDA-Public Use
  Company Number: US-AMGEN-US180082

PATIENT
  Sex: Male

DRUGS (9)
  1. EPOGEN [Suspect]
     Indication: DIALYSIS
     Route: 058
     Dates: start: 19980101
  2. SENSIPAR [Concomitant]
     Indication: HYPERPARATHYROIDISM SECONDARY
     Route: 065
  3. NADOLOL [Concomitant]
     Route: 065
  4. MINOXIDIL [Concomitant]
     Route: 065
  5. RENAGEL [Concomitant]
     Route: 065
  6. PHOSLO [Concomitant]
     Route: 065
  7. DIAZEPAM [Concomitant]
     Route: 065
  8. ZEMPLAR [Concomitant]
     Route: 042
  9. CEPHALEXIN [Concomitant]

REACTIONS (3)
  - ARTERIOVENOUS FISTULA [None]
  - SKIN INFECTION [None]
  - THERAPEUTIC RESPONSE DECREASED [None]
